FAERS Safety Report 18945596 (Version 2)
Quarter: 2021Q1

REPORT INFORMATION
  Report Type: Spontaneous
  Country: JP (occurrence: JP)
  Receive Date: 20210226
  Receipt Date: 20210311
  Transmission Date: 20210420
  Serious: Yes (Death, Other)
  Sender: FDA-Public Use
  Company Number: JP-PFIZER INC-2021182150

PATIENT
  Age: 84 Year
  Sex: Female

DRUGS (30)
  1. EDARAVONE [Suspect]
     Active Substance: EDARAVONE
     Indication: STAPHYLOCOCCAL BACTERAEMIA
  2. SAMSCA [Suspect]
     Active Substance: TOLVAPTAN
     Indication: THROMBOTIC CEREBRAL INFARCTION
  3. AZOSEMIDE [Suspect]
     Active Substance: AZOSEMIDE
     Indication: STAPHYLOCOCCAL BACTERAEMIA
  4. DAPTOMYCIN. [Suspect]
     Active Substance: DAPTOMYCIN
     Indication: THROMBOTIC CEREBRAL INFARCTION
  5. CEFAZOLIN SODIUM. [Suspect]
     Active Substance: CEFAZOLIN SODIUM
     Indication: THROMBOTIC CEREBRAL INFARCTION
  6. SPIRONOLACTONE. [Suspect]
     Active Substance: SPIRONOLACTONE
     Indication: CARDIAC FAILURE CONGESTIVE
     Dosage: UNK
  7. TEICOPLANIN [Suspect]
     Active Substance: TEICOPLANIN
     Indication: THROMBOTIC CEREBRAL INFARCTION
  8. DAPTOMYCIN. [Suspect]
     Active Substance: DAPTOMYCIN
     Indication: CARDIAC FAILURE CONGESTIVE
     Dosage: UNK
  9. CARPERITIDE [Suspect]
     Active Substance: CARPERITIDE
     Indication: CARDIAC FAILURE CONGESTIVE
     Dosage: UNK
  10. TEICOPLANIN [Suspect]
     Active Substance: TEICOPLANIN
     Indication: STAPHYLOCOCCAL BACTERAEMIA
  11. ARGATROBAN. [Suspect]
     Active Substance: ARGATROBAN
     Indication: THROMBOTIC CEREBRAL INFARCTION
  12. CEFAZOLIN SODIUM. [Suspect]
     Active Substance: CEFAZOLIN SODIUM
     Indication: CARDIAC FAILURE CONGESTIVE
     Dosage: UNK
  13. SPIRONOLACTONE. [Suspect]
     Active Substance: SPIRONOLACTONE
     Indication: STAPHYLOCOCCAL BACTERAEMIA
  14. EDARAVONE [Suspect]
     Active Substance: EDARAVONE
     Indication: CARDIAC FAILURE CONGESTIVE
     Dosage: UNK
  15. AZOSEMIDE [Suspect]
     Active Substance: AZOSEMIDE
     Indication: THROMBOTIC CEREBRAL INFARCTION
  16. DAPTOMYCIN. [Suspect]
     Active Substance: DAPTOMYCIN
     Indication: STAPHYLOCOCCAL BACTERAEMIA
  17. CARPERITIDE [Suspect]
     Active Substance: CARPERITIDE
     Indication: STAPHYLOCOCCAL BACTERAEMIA
  18. CEFAZOLIN SODIUM. [Suspect]
     Active Substance: CEFAZOLIN SODIUM
     Indication: STAPHYLOCOCCAL BACTERAEMIA
  19. VANCOMYCIN HYDROCHLORIDE. [Suspect]
     Active Substance: VANCOMYCIN HYDROCHLORIDE
     Indication: STAPHYLOCOCCAL BACTERAEMIA
  20. TEICOPLANIN [Suspect]
     Active Substance: TEICOPLANIN
     Indication: CARDIAC FAILURE CONGESTIVE
     Dosage: UNK
  21. EDARAVONE [Suspect]
     Active Substance: EDARAVONE
     Indication: THROMBOTIC CEREBRAL INFARCTION
  22. VANCOMYCIN HYDROCHLORIDE. [Suspect]
     Active Substance: VANCOMYCIN HYDROCHLORIDE
     Indication: CARDIAC FAILURE CONGESTIVE
     Dosage: UNK
  23. ARGATROBAN. [Suspect]
     Active Substance: ARGATROBAN
     Indication: STAPHYLOCOCCAL BACTERAEMIA
  24. SPIRONOLACTONE. [Suspect]
     Active Substance: SPIRONOLACTONE
     Indication: THROMBOTIC CEREBRAL INFARCTION
  25. VANCOMYCIN HYDROCHLORIDE. [Suspect]
     Active Substance: VANCOMYCIN HYDROCHLORIDE
     Indication: THROMBOTIC CEREBRAL INFARCTION
  26. SAMSCA [Suspect]
     Active Substance: TOLVAPTAN
     Indication: CARDIAC FAILURE CONGESTIVE
     Dosage: UNK
  27. SAMSCA [Suspect]
     Active Substance: TOLVAPTAN
     Indication: STAPHYLOCOCCAL BACTERAEMIA
  28. ARGATROBAN. [Suspect]
     Active Substance: ARGATROBAN
     Indication: CARDIAC FAILURE CONGESTIVE
     Dosage: UNK
  29. AZOSEMIDE [Suspect]
     Active Substance: AZOSEMIDE
     Indication: CARDIAC FAILURE CONGESTIVE
     Dosage: UNK
  30. CARPERITIDE [Suspect]
     Active Substance: CARPERITIDE
     Indication: THROMBOTIC CEREBRAL INFARCTION

REACTIONS (4)
  - Endocarditis [Fatal]
  - Infusion site erythema [Fatal]
  - Infusion site haemorrhage [Fatal]
  - Septic shock [Fatal]
